FAERS Safety Report 16297745 (Version 1)
Quarter: 2019Q2

REPORT INFORMATION
  Report Type: Report from Study
  Country: FI (occurrence: FI)
  Receive Date: 20190510
  Receipt Date: 20190510
  Transmission Date: 20190711
  Serious: Yes (Death)
  Sender: FDA-Public Use
  Company Number: FI-TEVA-2019-FI-1046685

PATIENT
  Age: 30 Year
  Sex: Male

DRUGS (5)
  1. DESMETHYLDIAZEPAM [Concomitant]
     Active Substance: NORDAZEPAM
     Route: 065
  2. CAFFEINE. [Concomitant]
     Active Substance: CAFFEINE
     Route: 065
  3. TRAMADOL. [Interacting]
     Active Substance: TRAMADOL
     Route: 065
  4. CODEINE [Concomitant]
     Active Substance: CODEINE
     Route: 065
  5. CITALOPRAM [Suspect]
     Active Substance: CITALOPRAM HYDROBROMIDE
     Route: 065

REACTIONS (1)
  - Drug interaction [Fatal]
